FAERS Safety Report 25868386 (Version 1)
Quarter: 2025Q4

REPORT INFORMATION
  Report Type: Spontaneous
  Country: US (occurrence: US)
  Receive Date: 20251001
  Receipt Date: 20251001
  Transmission Date: 20260117
  Serious: Yes (Death, Other)
  Sender: AMGEN
  Company Number: US-AMGEN-USASP2025191972

PATIENT
  Age: 75 Year
  Sex: Female

DRUGS (3)
  1. BEVACIZUMAB [Suspect]
     Active Substance: BEVACIZUMAB
     Indication: Non-small cell lung cancer
     Dosage: UNK
     Route: 065
  2. OSIMERTINIB [Concomitant]
     Active Substance: OSIMERTINIB
     Indication: Non-small cell lung cancer
  3. MORPHINE [Concomitant]
     Active Substance: MORPHINE
     Dosage: 384 MILLIGRAM
     Route: 048

REACTIONS (6)
  - Non-small cell lung cancer [Fatal]
  - Pathological fracture [Unknown]
  - Memory impairment [Unknown]
  - Dizziness [Unknown]
  - Somnolence [Recovered/Resolved]
  - Fatigue [Unknown]
